FAERS Safety Report 7765987-8 (Version None)
Quarter: 2011Q3

REPORT INFORMATION
  Report Type: 
  Country: None (occurrence: None)
  Receive Date: 20110921
  Receipt Date: 20110908
  Transmission Date: 20111222
  Serious: Yes (Other)
  Sender: FDA-Public Use
  Company Number: GB-MYLANLABS-2011S1018980

PATIENT
  Age: 79 Year
  Sex: Female

DRUGS (6)
  1. CITALOPRAM HYDROBROMIDE [Suspect]
     Indication: PRODUCT USED FOR UNKNOWN INDICATION
     Dates: end: 20110708
  2. CITALOPRAM HYDROBROMIDE [Suspect]
     Dates: end: 20110701
  3. FUROSEMIDE [Concomitant]
     Indication: PRODUCT USED FOR UNKNOWN INDICATION
  4. CANDESARTAN CILEXETIL [Concomitant]
     Indication: PRODUCT USED FOR UNKNOWN INDICATION
  5. MIRTAZAPINE [Suspect]
     Indication: PRODUCT USED FOR UNKNOWN INDICATION
     Dates: start: 20110719
  6. SIMVASTATIN [Concomitant]
     Indication: PRODUCT USED FOR UNKNOWN INDICATION

REACTIONS (9)
  - ABNORMAL DREAMS [None]
  - FALL [None]
  - DRUG INTOLERANCE [None]
  - CIRCULATORY COLLAPSE [None]
  - SCREAMING [None]
  - NIGHTMARE [None]
  - BLOOD PRESSURE FLUCTUATION [None]
  - PALPITATIONS [None]
  - HAND FRACTURE [None]
